FAERS Safety Report 12454670 (Version 2)
Quarter: 2016Q2

REPORT INFORMATION
  Report Type: Spontaneous
  Country: JP (occurrence: JP)
  Receive Date: 20160610
  Receipt Date: 20160616
  Transmission Date: 20160815
  Serious: Yes (Hospitalization)
  Sender: FDA-Public Use
  Company Number: JP-BAYER-2016-108007

PATIENT
  Age: 77 Year
  Sex: Male
  Weight: 57 kg

DRUGS (3)
  1. ACETYLSALICYLIC ACID({=100 MG) [Suspect]
     Active Substance: ASPIRIN
     Indication: ANTICOAGULANT THERAPY
     Dosage: UNK
     Route: 048
     Dates: start: 2005
  2. CLOPIDOGREL [Interacting]
     Active Substance: CLOPIDOGREL BISULFATE
     Dosage: UNK
     Route: 048
  3. WARFARIN POTASSIUM [Interacting]
     Active Substance: WARFARIN POTASSIUM
     Indication: ANTICOAGULANT THERAPY
     Route: 048

REACTIONS (9)
  - Supraventricular extrasystoles [None]
  - Labelled drug-drug interaction medication error [None]
  - International normalised ratio increased [None]
  - Aneurysm ruptured [None]
  - Anaemia [None]
  - Thrombosis [None]
  - Retroperitoneal haematoma [None]
  - Aortic aneurysm rupture [None]
  - Ventricular extrasystoles [None]

NARRATIVE: CASE EVENT DATE: 201508
